FAERS Safety Report 19580069 (Version 3)
Quarter: 2021Q3

REPORT INFORMATION
  Report Type: Spontaneous
  Country: FR (occurrence: FR)
  Receive Date: 20210720
  Receipt Date: 20210901
  Transmission Date: 20211014
  Serious: Yes (Disabling)
  Sender: FDA-Public Use
  Company Number: FR-ROCHE-2873134

PATIENT
  Age: 88 Year
  Sex: Female

DRUGS (1)
  1. LUCENTIS [Suspect]
     Active Substance: RANIBIZUMAB
     Indication: AGE-RELATED MACULAR DEGENERATION
     Dosage: (1 INJECTION EACH EYE)
     Route: 065
     Dates: start: 20210610, end: 20210610

REACTIONS (4)
  - Lacrimation increased [Not Recovered/Not Resolved]
  - Visual acuity reduced [Recovering/Resolving]
  - Circumstance or information capable of leading to medication error [Unknown]
  - Ocular hyperaemia [Not Recovered/Not Resolved]

NARRATIVE: CASE EVENT DATE: 20210706
